FAERS Safety Report 8134740-8 (Version None)
Quarter: 2012Q1

REPORT INFORMATION
  Report Type: 
  Country: None (occurrence: None)
  Receive Date: 20120214
  Receipt Date: 20120209
  Transmission Date: 20120608
  Serious: Yes (Other)
  Sender: FDA-Public Use
  Company Number: FR-PFIZER INC-2012036522

PATIENT
  Age: 70 Year
  Sex: Female

DRUGS (2)
  1. CRESTOR [Suspect]
     Dosage: UNK
  2. ATORVASTATIN [Suspect]
     Dosage: UNK

REACTIONS (1)
  - TOXIC SKIN ERUPTION [None]
